FAERS Safety Report 4309698-X (Version None)
Quarter: 2004Q1

REPORT INFORMATION
  Report Type: 
  Country: None (occurrence: None)
  Receive Date: 20040301
  Receipt Date: 20040216
  Transmission Date: 20041129
  Serious: Yes (Life-Threatening)
  Sender: FDA-Public Use
  Company Number: 04P-131-0250240-00

PATIENT
  Age: 33 Year
  Sex: Male
  Weight: 72.5755 kg

DRUGS (11)
  1. KALETRA [Suspect]
     Indication: HIV INFECTION
     Dosage: 2 IN 1 D, PER ORAL
     Route: 048
     Dates: start: 20030522, end: 20030724
  2. KALETRA [Suspect]
     Indication: HIV INFECTION
     Dosage: 2 IN 1 D, PER ORAL
     Route: 048
     Dates: start: 20030917, end: 20040212
  3. VITACEL [Concomitant]
  4. BACTRIM [Concomitant]
  5. FERROPLEX [Concomitant]
  6. MEGESTROL ACETATE [Concomitant]
  7. DONATUSSIN DC [Concomitant]
  8. SALBUTAMOL [Concomitant]
  9. MEZLIZINE [Concomitant]
  10. LAMIVUDINE [Concomitant]
  11. VIREAD [Concomitant]

REACTIONS (4)
  - BLOOD AMYLASE INCREASED [None]
  - BLOOD CREATININE INCREASED [None]
  - BLOOD POTASSIUM INCREASED [None]
  - LIPASE INCREASED [None]
